FAERS Safety Report 11110142 (Version 1)
Quarter: 2015Q2

REPORT INFORMATION
  Report Type: Spontaneous
  Country: US (occurrence: None)
  Receive Date: 20150512
  Receipt Date: 20150512
  Transmission Date: 20150821
  Serious: Yes (Congenital Anomaly)
  Sender: FDA-Public Use
  Company Number: None

PATIENT
  Age: 67 Year
  Sex: Male
  Weight: 91.63 kg

DRUGS (2)
  1. OLYSIO [Suspect]
     Active Substance: SIMEPREVIR
     Indication: CHRONIC HEPATITIS C
     Dosage: ONE DAILY PO
     Route: 048
     Dates: start: 20150109, end: 20150511
  2. SOVALDI [Suspect]
     Active Substance: SOFOSBUVIR
     Indication: CHRONIC HEPATITIS C
     Dosage: ONE DAILY PO
     Route: 048
     Dates: start: 20150109, end: 20150511

REACTIONS (1)
  - Blood creatinine increased [None]

NARRATIVE: CASE EVENT DATE: 20150505
